FAERS Safety Report 8850309 (Version 1)
Quarter: 2012Q4

REPORT INFORMATION
  Report Type: 
  Country: GB (occurrence: GB)
  Receive Date: 20121019
  Receipt Date: 20121019
  Transmission Date: 20130627
  Serious: Yes (Death, Hospitalization)
  Sender: FDA-Public Use
  Company Number: GB-B.I. PHARMACEUTICALS,INC./RIDGEFIELD-2012-UK-01500UK

PATIENT
  Age: 87 Year
  Sex: Male

DRUGS (1)
  1. DABIGATRAN [Suspect]
     Indication: THROMBOSIS PROPHYLAXIS

REACTIONS (4)
  - Organ failure [Fatal]
  - Acute abdomen [Unknown]
  - Peritonitis [Unknown]
  - Sepsis [Unknown]
